FAERS Safety Report 22386572 (Version 2)
Quarter: 2023Q2

REPORT INFORMATION
  Report Type: Spontaneous
  Country: ES (occurrence: ES)
  Receive Date: 20230531
  Receipt Date: 20230603
  Transmission Date: 20230721
  Serious: Yes (Other)
  Sender: FDA-Public Use
  Company Number: ES-CELLTRION INC.-2023ES010889

PATIENT

DRUGS (4)
  1. RITUXIMAB [Interacting]
     Active Substance: RITUXIMAB
     Indication: Granulomatosis with polyangiitis
  2. ELASOMERAN [Interacting]
     Active Substance: ELASOMERAN
     Indication: COVID-19 prophylaxis
     Dosage: FIRST DOSE
  3. ELASOMERAN [Interacting]
     Active Substance: ELASOMERAN
     Dosage: SECOND DOSE
  4. ELASOMERAN [Interacting]
     Active Substance: ELASOMERAN
     Dosage: THIRD DOSE

REACTIONS (3)
  - Humoral immune defect [Unknown]
  - COVID-19 [Unknown]
  - Vaccine interaction [Unknown]
